FAERS Safety Report 8492968-1 (Version None)
Quarter: 2012Q3

REPORT INFORMATION
  Report Type: 
  Country: None (occurrence: None)
  Receive Date: 20120706
  Receipt Date: 20120628
  Transmission Date: 20120928
  Serious: Yes (Disabling)
  Sender: FDA-Public Use
  Company Number: GB-VIIV HEALTHCARE LIMITED-B0813047A

PATIENT
  Sex: Female

DRUGS (1)
  1. ZIDOVUDINE [Suspect]
     Indication: EXPOSURE TO COMMUNICABLE DISEASE
     Dosage: 4MGK TWICE PER DAY
     Route: 048

REACTIONS (1)
  - NYSTAGMUS [None]
